FAERS Safety Report 5811986-2 (Version None)
Quarter: 2008Q3

REPORT INFORMATION
  Report Type: 
  Country: None (occurrence: None)
  Receive Date: 20080714
  Receipt Date: 20080707
  Transmission Date: 20090109
  Serious: Yes (Death, Hospitalization)
  Sender: FDA-Public Use
  Company Number: 056-21880-08070346

PATIENT
  Age: 65 Year
  Sex: Female

DRUGS (2)
  1. REVLIMID [Suspect]
     Indication: MULTIPLE MYELOMA
     Dosage: 25 MG, ORAL
     Route: 048
  2. DEXAMETHASONE TAB [Concomitant]

REACTIONS (4)
  - DISEASE PROGRESSION [None]
  - ENTEROBACTER SEPSIS [None]
  - NEUTROPENIA [None]
  - SEPTIC SHOCK [None]
